FAERS Safety Report 8907497 (Version 2)
Quarter: 2013Q1

REPORT INFORMATION
  Report Type: Report from Study
  Country: US (occurrence: US)
  Receive Date: 20121114
  Receipt Date: 20130121
  Transmission Date: 20140127
  Serious: Yes (Hospitalization)
  Sender: FDA-Public Use
  Company Number: US-BIOGENIDEC-2012BI051818

PATIENT
  Age: 23 Year
  Sex: Female
  Weight: 64 kg

DRUGS (13)
  1. TYSABRI [Suspect]
     Indication: CROHN^S DISEASE
     Route: 042
     Dates: start: 20110525, end: 20120820
  2. DICYCLOMINE [Concomitant]
     Indication: CROHN^S DISEASE
     Route: 048
     Dates: start: 201001
  3. ATIVAN [Concomitant]
     Indication: ANXIETY
     Route: 048
     Dates: start: 2009
  4. METHOTREXATE [Concomitant]
     Indication: CROHN^S DISEASE
     Route: 048
     Dates: start: 201209
  5. OXYCONTIN [Concomitant]
     Indication: ANXIETY
     Route: 048
     Dates: start: 2012
  6. ORAL CONTRACEPTIVE [Concomitant]
     Route: 048
     Dates: start: 2010
  7. TACROLIMUS [Concomitant]
     Route: 048
  8. PROCTOFORM [Concomitant]
  9. CELEBREX [Concomitant]
     Indication: PAIN
     Route: 048
  10. DILAUDID [Concomitant]
     Route: 048
  11. DILAUDID [Concomitant]
     Route: 048
  12. ZOFRAN [Concomitant]
     Route: 048
  13. ZOLOFT [Concomitant]

REACTIONS (1)
  - Volvulus of small bowel [Recovered/Resolved]
